FAERS Safety Report 25665942 (Version 1)
Quarter: 2025Q3

REPORT INFORMATION
  Report Type: Spontaneous
  Country: US (occurrence: US)
  Receive Date: 20250811
  Receipt Date: 20250811
  Transmission Date: 20251021
  Serious: Yes (Other)
  Sender: AIPING PHARMACEUTICAL
  Company Number: US-AIPING-2025AILIT00116

PATIENT
  Age: 5 Decade
  Sex: Female

DRUGS (11)
  1. PREDNISONE [Suspect]
     Active Substance: PREDNISONE
     Indication: Dermatomyositis
     Route: 065
  2. PREDNISONE [Suspect]
     Active Substance: PREDNISONE
     Route: 065
  3. Immunoglobulin [Concomitant]
     Indication: Dermatomyositis
     Route: 042
  4. MYCOPHENOLATE MOFETIL [Concomitant]
     Active Substance: MYCOPHENOLATE MOFETIL
     Indication: Dermatomyositis
     Route: 065
  5. MYCOPHENOLATE MOFETIL [Concomitant]
     Active Substance: MYCOPHENOLATE MOFETIL
     Route: 065
  6. APREMILAST [Concomitant]
     Active Substance: APREMILAST
     Indication: Dermatomyositis
     Route: 065
  7. AZATHIOPRINE [Concomitant]
     Active Substance: AZATHIOPRINE
     Indication: Product used for unknown indication
     Route: 065
  8. ANIFROLUMAB [Concomitant]
     Active Substance: ANIFROLUMAB
     Indication: Dermatomyositis
     Route: 065
  9. ANIFROLUMAB [Concomitant]
     Active Substance: ANIFROLUMAB
     Indication: Rash
  10. ANIFROLUMAB [Concomitant]
     Active Substance: ANIFROLUMAB
     Indication: Dysphagia
  11. ANIFROLUMAB [Concomitant]
     Active Substance: ANIFROLUMAB
     Indication: Synovitis

REACTIONS (2)
  - Steroid diabetes [Unknown]
  - Metabolic dysfunction-associated steatohepatitis [Unknown]
